FAERS Safety Report 14281281 (Version 8)
Quarter: 2020Q4

REPORT INFORMATION
  Report Type: Spontaneous
  Country: GR (occurrence: GR)
  Receive Date: 20171213
  Receipt Date: 20201002
  Transmission Date: 20210113
  Serious: Yes (Other)
  Sender: FDA-Public Use
  Company Number: GR-ASTRAZENECA-2017SF25111

PATIENT
  Age: 62 Year
  Sex: Female

DRUGS (85)
  1. FULVESTRANT. [Suspect]
     Active Substance: FULVESTRANT
     Indication: BREAST CANCER METASTATIC
     Route: 065
  2. CAPECITABINE. [Suspect]
     Active Substance: CAPECITABINE
     Indication: BREAST CANCER METASTATIC
     Dosage: 1 DF, CYCLIC COMBINATION WITH TRASTUZUMAB
     Route: 065
  3. EVEROLIMUS. [Suspect]
     Active Substance: EVEROLIMUS
     Indication: BREAST CANCER METASTATIC
     Route: 065
  4. EXEMESTANE. [Suspect]
     Active Substance: EXEMESTANE
     Indication: RECURRENT CANCER
     Dosage: DF, CYCLIC COMBINATION WITH EXEMESTANE AND EVEROLIMUS
     Route: 065
  5. LAPATINIB [Suspect]
     Active Substance: LAPATINIB
     Indication: METASTATIC MALIGNANT MELANOMA
     Dosage: 1 DF, CYCLIC COMBINATION WITH TRASTZUMAB AND EXEMESTAN
     Route: 065
  6. LAPATINIB [Suspect]
     Active Substance: LAPATINIB
     Indication: BREAST CANCER METASTATIC
     Dosage: 1 DF, CYCLIC COMBINATION WITH TRASTZUMAB AND EXEMESTAN
     Route: 065
  7. PACLITAXEL. [Suspect]
     Active Substance: PACLITAXEL
     Indication: BREAST CANCER METASTATIC
     Dosage: 1 DF, CYCLIC
     Route: 065
     Dates: start: 2006
  8. VINORELBINE [Suspect]
     Active Substance: VINORELBINE TARTRATE
     Indication: RECURRENT CANCER
     Dosage: 1 DF, CYCLIC COMBINATION WITH TRASTUZUMAB
     Route: 065
     Dates: start: 2009
  9. CAPECITABINE. [Suspect]
     Active Substance: CAPECITABINE
     Indication: BREAST CANCER METASTATIC
     Dosage: 1 DF, CYCLIC COMBINATION WITH TRASTUZUMAB
     Route: 065
  10. DOCETAXEL. [Suspect]
     Active Substance: DOCETAXEL
     Indication: BREAST CANCER METASTATIC
     Route: 065
  11. DOCETAXEL. [Suspect]
     Active Substance: DOCETAXEL
     Indication: BREAST CANCER METASTATIC
     Route: 065
  12. LIPOSOMAL DOXORUBICIN HYDROCHLORIDE [Suspect]
     Active Substance: DOXORUBICIN HYDROCHLORIDE
     Indication: RECURRENT CANCER
     Dosage: 1 DF, QD COMBINATION WITH TRASTUZUMAB
     Route: 065
     Dates: start: 2009
  13. ERIBULIN [Suspect]
     Active Substance: ERIBULIN
     Indication: BREAST CANCER METASTATIC
     Dosage: 1 DF, CYCLIC COMBINATION WITH TRASTUZUMAB
     Route: 065
     Dates: start: 2009
  14. EVEROLIMUS. [Suspect]
     Active Substance: EVEROLIMUS
     Indication: BREAST CANCER METASTATIC
     Route: 065
  15. LAPATINIB [Suspect]
     Active Substance: LAPATINIB
     Indication: BREAST CANCER METASTATIC
     Route: 065
  16. VINORELBINE [Suspect]
     Active Substance: VINORELBINE TARTRATE
     Indication: BREAST CANCER METASTATIC
     Dosage: 1 DF, CYCLIC COMBINATION WITH TRASTUZUMAB
     Route: 065
     Dates: start: 2009
  17. VINORELBINE [Suspect]
     Active Substance: VINORELBINE TARTRATE
     Indication: BREAST CANCER METASTATIC
     Route: 065
  18. VINORELBINE [Suspect]
     Active Substance: VINORELBINE TARTRATE
     Indication: RECURRENT CANCER
     Route: 065
  19. TAMOXIFEN CITRATE. [Suspect]
     Active Substance: TAMOXIFEN CITRATE
     Indication: BREAST CANCER METASTATIC
     Route: 065
  20. TAMOXIFEN CITRATE. [Suspect]
     Active Substance: TAMOXIFEN CITRATE
     Indication: RECURRENT CANCER
     Dosage: 1 DF, CYCLIC COMBINATION WITH TRASTUZUMAB
     Route: 048
  21. CARBOPLATIN. [Suspect]
     Active Substance: CARBOPLATIN
     Indication: BREAST CANCER METASTATIC
     Route: 065
  22. CARBOPLATIN. [Suspect]
     Active Substance: CARBOPLATIN
     Indication: BREAST CANCER METASTATIC
     Dosage: 1 DF, CYCLIC COMBINATION WITH TRASTUZUMAB AND GEMCITABINE
     Route: 065
     Dates: start: 2009
  23. EVEROLIMUS. [Suspect]
     Active Substance: EVEROLIMUS
     Indication: BREAST CANCER FEMALE
     Dosage: 1 DF, CYCLIC COMBINATION WITH TRASTZUMAB AND EXEMESTANE
     Route: 065
  24. EVEROLIMUS. [Suspect]
     Active Substance: EVEROLIMUS
     Indication: BREAST CANCER FEMALE
     Route: 065
  25. EXEMESTANE. [Suspect]
     Active Substance: EXEMESTANE
     Indication: BREAST CANCER METASTATIC
     Dosage: 1 DF, CYCLIC
     Route: 065
     Dates: start: 2009
  26. EXEMESTANE. [Suspect]
     Active Substance: EXEMESTANE
     Indication: BREAST CANCER METASTATIC
     Dosage: DF, CYCLIC COMBINATION WITH EXEMESTANE AND EVEROLIMUS
     Route: 065
  27. LAPATINIB [Suspect]
     Active Substance: LAPATINIB
     Indication: METASTATIC MALIGNANT MELANOMA
     Route: 065
  28. LAPATINIB [Suspect]
     Active Substance: LAPATINIB
     Indication: BREAST CANCER METASTATIC
     Route: 065
  29. TRASTUZUMAB. [Suspect]
     Active Substance: TRASTUZUMAB
     Indication: BREAST CANCER METASTATIC
     Dosage: 1 DF,CYCLIC COMBINATION WITH EXEMESTANE AND EVEROLIMUS
     Route: 065
  30. TRASTUZUMAB. [Suspect]
     Active Substance: TRASTUZUMAB
     Indication: BREAST CANCER METASTATIC
     Dosage: 1 DF, CYCLIC, COMBINATION WITH GEMCITABINE AND CARBOPLATIN
     Route: 065
  31. FULVESTRANT. [Suspect]
     Active Substance: FULVESTRANT
     Indication: BREAST CANCER METASTATIC
     Route: 065
  32. FULVESTRANT. [Suspect]
     Active Substance: FULVESTRANT
     Indication: BREAST CANCER METASTATIC
     Route: 065
  33. FULVESTRANT. [Suspect]
     Active Substance: FULVESTRANT
     Indication: BREAST CANCER METASTATIC
     Dosage: 1 DF, CYCLIC COMBINATION WITH TRASTUZUMAB
     Route: 030
     Dates: start: 2009
  34. TAMOXIFEN CITRATE. [Suspect]
     Active Substance: TAMOXIFEN CITRATE
     Indication: RECURRENT CANCER
     Route: 065
  35. TAMOXIFEN CITRATE. [Suspect]
     Active Substance: TAMOXIFEN CITRATE
     Indication: BREAST CANCER METASTATIC
     Dosage: 1 DF, CYCLIC COMBINATION WITH TRASTUZUMAB
     Route: 048
  36. DOCETAXEL. [Suspect]
     Active Substance: DOCETAXEL
     Indication: BREAST CANCER METASTATIC
     Dosage: 1 DF, CYCLIC
     Route: 065
     Dates: start: 2009
  37. LIPOSOMAL DOXORUBICIN HYDROCHLORIDE [Suspect]
     Active Substance: DOXORUBICIN HYDROCHLORIDE
     Indication: BREAST CANCER METASTATIC
     Route: 065
  38. ERIBULIN [Suspect]
     Active Substance: ERIBULIN
     Indication: BREAST CANCER METASTATIC
     Route: 065
  39. EVEROLIMUS. [Suspect]
     Active Substance: EVEROLIMUS
     Indication: BREAST CANCER METASTATIC
     Dosage: 1 DF, CYCLIC COMBINATION WITH TRASTZUMAB AND EXEMESTANE
     Route: 065
  40. EVEROLIMUS. [Suspect]
     Active Substance: EVEROLIMUS
     Indication: PROPHYLAXIS AGAINST TRANSPLANT REJECTION
     Dosage: 1 DF, CYCLIC COMBINATION WITH TRASTZUMAB AND EXEMESTANE
     Route: 065
  41. EVEROLIMUS. [Suspect]
     Active Substance: EVEROLIMUS
     Indication: PROPHYLAXIS AGAINST TRANSPLANT REJECTION
     Route: 065
  42. LAPATINIB [Suspect]
     Active Substance: LAPATINIB
     Indication: BREAST CANCER METASTATIC
     Route: 065
  43. TRASTUZUMAB. [Suspect]
     Active Substance: TRASTUZUMAB
     Indication: BREAST CANCER METASTATIC
     Dosage: 1 DF, CYCLIC
     Route: 065
     Dates: start: 2009
  44. FULVESTRANT. [Suspect]
     Active Substance: FULVESTRANT
     Indication: BREAST CANCER METASTATIC
     Route: 065
  45. CAPECITABINE. [Suspect]
     Active Substance: CAPECITABINE
     Indication: BREAST CANCER METASTATIC
     Route: 065
  46. DOCETAXEL. [Suspect]
     Active Substance: DOCETAXEL
     Indication: BREAST CANCER METASTATIC
     Dosage: 1 DF, CYCLIC
     Route: 065
     Dates: start: 2009
  47. LIPOSOMAL DOXORUBICIN HYDROCHLORIDE [Suspect]
     Active Substance: DOXORUBICIN HYDROCHLORIDE
     Indication: RECURRENT CANCER
     Route: 065
  48. EPIRUBICIN HYDROCHLORIDE. [Suspect]
     Active Substance: EPIRUBICIN HYDROCHLORIDE
     Indication: BREAST CANCER METASTATIC
     Dosage: 1 DF, CYCLIC
     Route: 065
  49. ERIBULIN [Suspect]
     Active Substance: ERIBULIN
     Indication: RECURRENT CANCER
     Route: 065
  50. ERIBULIN [Suspect]
     Active Substance: ERIBULIN
     Indication: RECURRENT CANCER
     Dosage: 1 DF, CYCLIC COMBINATION WITH TRASTUZUMAB
     Route: 065
     Dates: start: 2009
  51. FLUOROURACIL. [Suspect]
     Active Substance: FLUOROURACIL
     Indication: BREAST CANCER METASTATIC
     Dosage: 1 DF, CYCLIC
     Route: 065
     Dates: start: 2006
  52. TRASTUZUMAB. [Suspect]
     Active Substance: TRASTUZUMAB
     Indication: BREAST CANCER METASTATIC
     Dosage: DF, CYCLIC COMBINATION WITH ERIBULIN
     Route: 065
  53. TRASTUZUMAB. [Suspect]
     Active Substance: TRASTUZUMAB
     Indication: BREAST CANCER METASTATIC
     Dosage: 1 DF, CYCLIC COMBINATION WITH CAPECITABINE
     Route: 065
  54. TRASTUZUMAB. [Suspect]
     Active Substance: TRASTUZUMAB
     Indication: BREAST CANCER METASTATIC
     Dosage: 1 DF, CYCLIC, COMBINATION WITH GEMCITABINE AND CARBOPLATIN
     Route: 065
  55. TRASTUZUMAB. [Suspect]
     Active Substance: TRASTUZUMAB
     Indication: BREAST CANCER METASTATIC
     Dosage: 1 DF, CYCLIC, COMBINATION WITH TAMOXIFEN
     Route: 065
  56. TRASTUZUMAB EMTANSINE [Suspect]
     Active Substance: ADO-TRASTUZUMAB EMTANSINE
     Indication: BREAST CANCER METASTATIC
     Dosage: 1 DF, CYCLIC
     Route: 065
     Dates: start: 2009
  57. TRASTUZUMAB EMTANSINE [Suspect]
     Active Substance: ADO-TRASTUZUMAB EMTANSINE
     Indication: RECURRENT CANCER
     Dosage: 1 DF, CYCLIC
     Route: 065
     Dates: start: 2009
  58. TRASTUZUMAB EMTANSINE [Suspect]
     Active Substance: ADO-TRASTUZUMAB EMTANSINE
     Indication: RECURRENT CANCER
     Route: 065
  59. LIPOSOMAL DOXORUBICIN HYDROCHLORIDE [Suspect]
     Active Substance: DOXORUBICIN HYDROCHLORIDE
     Indication: BREAST CANCER METASTATIC
     Dosage: 1 DF, QD COMBINATION WITH TRASTUZUMAB
     Route: 065
     Dates: start: 2009
  60. LAPATINIB [Suspect]
     Active Substance: LAPATINIB
     Indication: BREAST CANCER METASTATIC
     Dosage: 1 DF, CYCLIC COMBINATION WITH TRASTZUMAB AND EXEMESTAN
     Route: 065
  61. LAPATINIB [Suspect]
     Active Substance: LAPATINIB
     Indication: BREAST CANCER METASTATIC
     Route: 065
  62. METHOTREXATE SODIUM. [Suspect]
     Active Substance: METHOTREXATE SODIUM
     Indication: BREAST CANCER METASTATIC
     Dosage: 1 DF, CYCLIC
     Route: 065
  63. TRASTUZUMAB. [Suspect]
     Active Substance: TRASTUZUMAB
     Indication: BREAST CANCER METASTATIC
     Dosage: 1 DF, CYCLIC COMBINATION WITH CAPECITABINE
     Route: 065
  64. TRASTUZUMAB. [Suspect]
     Active Substance: TRASTUZUMAB
     Indication: BREAST CANCER METASTATIC
     Dosage: 1 DF, CYCLIC
     Route: 065
     Dates: start: 2009
  65. TRASTUZUMAB EMTANSINE [Suspect]
     Active Substance: ADO-TRASTUZUMAB EMTANSINE
     Indication: BREAST CANCER METASTATIC
     Route: 065
  66. FULVESTRANT. [Suspect]
     Active Substance: FULVESTRANT
     Indication: BREAST CANCER METASTATIC
     Dosage: 1 DF, CYCLIC COMBINATION WITH TRASTUZUMAB
     Route: 030
     Dates: start: 2009
  67. ENDOXAN [Suspect]
     Active Substance: CYCLOPHOSPHAMIDE
     Indication: BREAST CANCER METASTATIC
     Dosage: 1 DF, CYCLIC
     Route: 065
  68. EVEROLIMUS. [Suspect]
     Active Substance: EVEROLIMUS
     Indication: BREAST CANCER FEMALE
     Route: 065
  69. GEMCITABINE HYDROCHLORIDE. [Suspect]
     Active Substance: GEMCITABINE HYDROCHLORIDE
     Indication: BREAST CANCER METASTATIC
     Dosage: 1 DF, CYCLIC, COMBINATION WITH TRASTUZUMAB AND CARBOPLATIN
     Route: 065
     Dates: start: 2009
  70. LAPATINIB [Suspect]
     Active Substance: LAPATINIB
     Indication: METASTATIC MALIGNANT MELANOMA
     Route: 065
  71. TRASTUZUMAB. [Suspect]
     Active Substance: TRASTUZUMAB
     Indication: BREAST CANCER METASTATIC
     Dosage: DF, CYCLIC COMBINATION WITH LIPOSOMAL DOXORUBICIN HCL
     Route: 065
  72. TRASTUZUMAB. [Suspect]
     Active Substance: TRASTUZUMAB
     Indication: BREAST CANCER METASTATIC
     Dosage: DF, CYCLIC COMBINATION WITH ERIBULIN
     Route: 065
  73. TRASTUZUMAB. [Suspect]
     Active Substance: TRASTUZUMAB
     Indication: BREAST CANCER METASTATIC
     Dosage: 1 DF,CYCLIC COMBINATION WITH EXEMESTANE AND EVEROLIMUS
     Route: 065
  74. TRASTUZUMAB. [Suspect]
     Active Substance: TRASTUZUMAB
     Indication: BREAST CANCER METASTATIC
     Dosage: 1 DF, CYCLIC, COMBINATION WITH TAMOXIFEN
     Route: 065
  75. FULVESTRANT. [Suspect]
     Active Substance: FULVESTRANT
     Indication: BREAST CANCER METASTATIC
     Route: 065
  76. FULVESTRANT. [Suspect]
     Active Substance: FULVESTRANT
     Indication: BREAST CANCER METASTATIC
     Route: 065
  77. FULVESTRANT. [Suspect]
     Active Substance: FULVESTRANT
     Indication: BREAST CANCER METASTATIC
     Dosage: 1 DF, CYCLIC COMBINATION WITH TRASTUZUMAB
     Route: 030
     Dates: start: 2009
  78. CAPECITABINE. [Suspect]
     Active Substance: CAPECITABINE
     Indication: BREAST CANCER METASTATIC
     Route: 065
  79. CARBOPLATIN. [Suspect]
     Active Substance: CARBOPLATIN
     Indication: BREAST CANCER METASTATIC
     Route: 065
  80. CARBOPLATIN. [Suspect]
     Active Substance: CARBOPLATIN
     Indication: BREAST CANCER METASTATIC
     Dosage: 1 DF, CYCLIC COMBINATION WITH TRASTUZUMAB AND GEMCITABINE
     Route: 065
     Dates: start: 2009
  81. CYCLOPHOSPHAMIDE. [Suspect]
     Active Substance: CYCLOPHOSPHAMIDE
     Indication: BREAST CANCER METASTATIC
     Route: 065
  82. EPIRUBICIN HYDROCHLORIDE. [Suspect]
     Active Substance: EPIRUBICIN HYDROCHLORIDE
     Indication: BREAST CANCER METASTATIC
     Route: 065
  83. EVEROLIMUS. [Suspect]
     Active Substance: EVEROLIMUS
     Indication: PROPHYLAXIS AGAINST TRANSPLANT REJECTION
     Route: 065
  84. EXEMESTANE. [Suspect]
     Active Substance: EXEMESTANE
     Indication: RECURRENT CANCER
     Dosage: 1 DF, CYCLIC
     Route: 065
     Dates: start: 2009
  85. TRASTUZUMAB. [Suspect]
     Active Substance: TRASTUZUMAB
     Indication: BREAST CANCER METASTATIC
     Dosage: DF, CYCLIC COMBINATION WITH LIPOSOMAL DOXORUBICIN HCL
     Route: 065

REACTIONS (8)
  - Metastases to skin [Unknown]
  - Skin mass [Unknown]
  - Metastases to lung [Unknown]
  - Hormone receptor positive breast cancer [Unknown]
  - Recurrent cancer [Unknown]
  - Malignant neoplasm progression [Unknown]
  - Metastases to lymph nodes [Unknown]
  - Metastases to bone [Unknown]

NARRATIVE: CASE EVENT DATE: 2009
